FAERS Safety Report 21455786 (Version 1)
Quarter: 2022Q4

REPORT INFORMATION
  Report Type: Spontaneous
  Country: US (occurrence: US)
  Receive Date: 20221014
  Receipt Date: 20221014
  Transmission Date: 20230112
  Serious: No
  Sender: FDA-Public Use
  Company Number: US-SUN PHARMACEUTICAL INDUSTRIES LTD-2022R1-342196

PATIENT
  Age: 51 Year
  Sex: Female

DRUGS (1)
  1. ILUMYA [Suspect]
     Active Substance: TILDRAKIZUMAB-ASMN
     Indication: Psoriasis
     Dosage: AT WEEK 4, THEN EVERY 12 WEEKS
     Route: 058
     Dates: start: 202202, end: 20220621

REACTIONS (8)
  - Malaise [Unknown]
  - Injection site pruritus [Unknown]
  - Injection site urticaria [Unknown]
  - Diarrhoea [Unknown]
  - Fatigue [Unknown]
  - Abdominal discomfort [Unknown]
  - Headache [Unknown]
  - Injection site hypersensitivity [Unknown]

NARRATIVE: CASE EVENT DATE: 20220621
